FAERS Safety Report 23794053 (Version 1)
Quarter: 2024Q2

REPORT INFORMATION
  Report Type: Spontaneous
  Country: FR (occurrence: FR)
  Receive Date: 20240429
  Receipt Date: 20240429
  Transmission Date: 20240716
  Serious: Yes (Other)
  Sender: FDA-Public Use
  Company Number: FR-AstraZeneca-2024A092933

PATIENT
  Sex: Female

DRUGS (2)
  1. BEVACIZUMAB [Suspect]
     Active Substance: BEVACIZUMAB
     Dosage: UNK
  2. OLAPARIB [Suspect]
     Active Substance: OLAPARIB
     Dosage: UNK
     Route: 048

REACTIONS (1)
  - Interstitial lung disease [Unknown]
